FAERS Safety Report 7922018-4 (Version None)
Quarter: 2011Q4

REPORT INFORMATION
  Report Type: 
  Country: None (occurrence: None)
  Receive Date: 20111117
  Receipt Date: 20111114
  Transmission Date: 20120403
  Serious: Yes (Life-Threatening)
  Sender: FDA-Public Use
  Company Number: RO-ASTRAZENECA-2011SE68958

PATIENT
  Age: 49 Year
  Sex: Female

DRUGS (3)
  1. INDAPAMID [Concomitant]
  2. CRESTOR [Suspect]
     Indication: DYSLIPIDAEMIA
     Route: 048
     Dates: start: 20111101, end: 20111101
  3. PERINDOPRIL ERBUMINE [Concomitant]

REACTIONS (1)
  - ANAPHYLACTIC SHOCK [None]
